FAERS Safety Report 6750914-2 (Version None)
Quarter: 2010Q2

REPORT INFORMATION
  Report Type: 
  Country: None (occurrence: None)
  Receive Date: 20100602
  Receipt Date: 20100524
  Transmission Date: 20101027
  Serious: Yes (Hospitalization, Other)
  Sender: FDA-Public Use
  Company Number: PHHY2010US31123

PATIENT
  Sex: Male
  Weight: 62 kg

DRUGS (26)
  1. EXJADE [Suspect]
     Indication: MYELODYSPLASTIC SYNDROME
     Dosage: 1250 MG DAILY
     Route: 048
     Dates: start: 20100320
  2. EXJADE [Suspect]
     Dosage: 750 MG DAILY
     Route: 048
  3. ALLOPURINOL [Concomitant]
     Dosage: 100 MG DAILY
  4. NORVASC [Concomitant]
     Dosage: 10 MG DAILY
  5. ASPIRIN [Concomitant]
     Dosage: 81 MG DAILY
  6. ALPHAGAN [Concomitant]
  7. BUSPAR [Concomitant]
     Dosage: 5 MG, BID
  8. COREG [Concomitant]
     Dosage: 12.5 MG, BID
  9. PLAVIX [Concomitant]
     Dosage: 75 MG DAILY
  10. TRUSOPT [Concomitant]
     Dosage: 2 % DROPS
  11. VASOTEC [Concomitant]
     Dosage: 5 MG, BID
  12. PROCRIT                            /00909301/ [Concomitant]
     Dosage: 4000 UNITS SUBQ ONCE A MONTH
  13. NEXIUM [Concomitant]
     Dosage: 20 MG DAILY
  14. NEUPOGEN [Concomitant]
     Dosage: 480 MCG SUBQ EVERY MONDAY AND THURSDAY
  15. ADVAIR DISKUS 100/50 [Concomitant]
     Dosage: 250/50 INHALED BID
  16. LASIX [Concomitant]
     Dosage: 40 MG EVERY OTHER DAY
  17. POTASSIUM [Concomitant]
     Dosage: 20 MEQ EVERY OTHER DAY
  18. HYDRALAZINE HCL [Concomitant]
     Dosage: 10 MG Q.8 HOURS
  19. ISOSORBIDE DINITRATE [Concomitant]
     Dosage: 10 MG, BID
  20. ZOCOR [Concomitant]
     Dosage: 20 MG DAILY
  21. FLOMAX [Concomitant]
     Dosage: 0.4 MG DAILY
  22. RESTORIL [Concomitant]
     Dosage: 30 MG AT BEDTIME
  23. TIMOLOL MALEATE [Concomitant]
     Dosage: 1 DROP TO EYE BID
  24. TRAVATAN [Concomitant]
  25. TYLENOL [Concomitant]
     Dosage: EXTRA STRENGTH AS NEEDED
  26. NITROGLYCERIN [Concomitant]
     Indication: CHEST PAIN
     Dosage: 0.4 MG, PRN
     Route: 060

REACTIONS (16)
  - ANAEMIA [None]
  - AORTIC STENOSIS [None]
  - CARDIAC FAILURE CONGESTIVE [None]
  - CARDIAC VALVE DISEASE [None]
  - CHEST DISCOMFORT [None]
  - CHEST PAIN [None]
  - CHRONIC OBSTRUCTIVE PULMONARY DISEASE [None]
  - FULL BLOOD COUNT DECREASED [None]
  - HAEMOGLOBIN DECREASED [None]
  - LEUKOCYTOSIS [None]
  - MACULAR DEGENERATION [None]
  - NASAL DISCOMFORT [None]
  - NASAL OPERATION [None]
  - PLEURAL EFFUSION [None]
  - RENAL FAILURE CHRONIC [None]
  - SINUSITIS [None]
